FAERS Safety Report 6421849-X (Version None)
Quarter: 2009Q4

REPORT INFORMATION
  Report Type: 
  Country: None (occurrence: None)
  Receive Date: 20091030
  Receipt Date: 20091026
  Transmission Date: 20100525
  Serious: Yes (Hospitalization, Other)
  Sender: FDA-Public Use
  Company Number: US-BAYER-200915908BCC

PATIENT
  Age: 75 Year
  Sex: Female

DRUGS (2)
  1. ASPIRIN [Suspect]
     Indication: POSTOPERATIVE CARE
     Route: 048
     Dates: start: 20090801
  2. CLOPIDOGREL [Suspect]
     Indication: POSTOPERATIVE CARE
     Dosage: TOTAL DAILY DOSE: 75 MG  UNIT DOSE: 75 MG
     Route: 048
     Dates: start: 20090801

REACTIONS (4)
  - CONTUSION [None]
  - FEELING HOT [None]
  - LOCAL SWELLING [None]
  - POST PROCEDURAL HAEMORRHAGE [None]
